FAERS Safety Report 18028423 (Version 3)
Quarter: 2021Q3

REPORT INFORMATION
  Report Type: Spontaneous
  Country: CA (occurrence: CA)
  Receive Date: 20200715
  Receipt Date: 20210804
  Transmission Date: 20211014
  Serious: Yes (Other)
  Sender: FDA-Public Use
  Company Number: CA-ASTRAZENECA-2020SE86744

PATIENT
  Age: 49 Year
  Sex: Female

DRUGS (11)
  1. IBRANCE [Suspect]
     Active Substance: PALBOCICLIB
     Indication: BREAST CANCER
     Route: 065
  2. PALBOCICLIB [Suspect]
     Active Substance: PALBOCICLIB
     Indication: BREAST CANCER
     Route: 065
  3. PACLITAXEL. [Suspect]
     Active Substance: PACLITAXEL
     Indication: BREAST CANCER
     Route: 042
  4. APO?LETROZOLE [Suspect]
     Active Substance: LETROZOLE
     Indication: BREAST CANCER
     Route: 065
  5. XELODA [Suspect]
     Active Substance: CAPECITABINE
     Indication: BREAST CANCER
     Route: 048
  6. FULVESTRANT. [Suspect]
     Active Substance: FULVESTRANT
     Indication: BREAST CANCER
     Route: 005
  7. TAMOXIFEN [Suspect]
     Active Substance: TAMOXIFEN
     Indication: BREAST CANCER
     Route: 048
  8. CLODRONIC ACID [Suspect]
     Active Substance: CLODRONIC ACID
     Indication: BREAST CANCER
     Route: 065
  9. CLODRONATE DISODIUM [Suspect]
     Active Substance: CLODRONATE DISODIUM
     Indication: BREAST CANCER
     Route: 065
  10. ERIBULIN MESILATE [Suspect]
     Active Substance: ERIBULIN
     Indication: BREAST CANCER
     Route: 041
  11. CAPECITABINE. [Suspect]
     Active Substance: CAPECITABINE
     Indication: BREAST CANCER
     Route: 048

REACTIONS (13)
  - Immunosuppression [Recovering/Resolving]
  - Headache [Recovering/Resolving]
  - White blood cell count increased [Recovering/Resolving]
  - Metastases to eye [Recovering/Resolving]
  - Protein total increased [Recovering/Resolving]
  - Asthenia [Recovering/Resolving]
  - Herpes simplex encephalitis [Unknown]
  - Breast cancer [Recovering/Resolving]
  - Meningoencephalitis herpetic [Recovering/Resolving]
  - Metastases to liver [Recovering/Resolving]
  - Metastases to central nervous system [Recovering/Resolving]
  - Malignant neoplasm progression [Recovering/Resolving]
  - Platelet count decreased [Recovering/Resolving]
